FAERS Safety Report 16536522 (Version 2)
Quarter: 2022Q4

REPORT INFORMATION
  Report Type: Spontaneous
  Country: IE (occurrence: IE)
  Receive Date: 20190706
  Receipt Date: 20221219
  Transmission Date: 20230112
  Serious: Yes (Disabling)
  Sender: FDA-Public Use
  Company Number: IE-AUROBINDO-AUR-APL-2019-037715

PATIENT
  Age: 38 Year
  Sex: Female

DRUGS (6)
  1. GABAPENTIN [Suspect]
     Active Substance: GABAPENTIN
     Indication: Migraine
     Dosage: UNK
     Route: 065
  2. VENLAFAXINE [Suspect]
     Active Substance: VENLAFAXINE HYDROCHLORIDE
     Indication: Migraine
     Dosage: UNK
     Route: 065
  3. MEMANTINE [Suspect]
     Active Substance: MEMANTINE
     Indication: Migraine
     Dosage: UNK
     Route: 065
  4. BOTOX [Suspect]
     Active Substance: ONABOTULINUMTOXINA
     Indication: Migraine
     Dosage: UNK
     Route: 065
  5. AMITRIPTYLINE [Suspect]
     Active Substance: AMITRIPTYLINE
     Indication: Migraine
     Dosage: UNK
     Route: 065
  6. TOPIRAMATE [Suspect]
     Active Substance: TOPIRAMATE
     Indication: Migraine
     Dosage: UNK
     Route: 065

REACTIONS (3)
  - Migraine [Unknown]
  - Treatment failure [Unknown]
  - Product use in unapproved indication [Unknown]
